FAERS Safety Report 17888277 (Version 1)
Quarter: 2020Q2

REPORT INFORMATION
  Report Type: Spontaneous
  Country: US (occurrence: US)
  Receive Date: 20200611
  Receipt Date: 20200611
  Transmission Date: 20200714
  Serious: Yes (Death)
  Sender: FDA-Public Use
  Company Number: None

PATIENT
  Age: 67 Year
  Sex: Male
  Weight: 78.5 kg

DRUGS (1)
  1. REMDESIVIR TREATMENT UNDER EMERGENCY USE AUTHORIZATION (EUA) [Suspect]
     Active Substance: REMDESIVIR

REACTIONS (1)
  - General physical health deterioration [None]

NARRATIVE: CASE EVENT DATE: 20200605
